FAERS Safety Report 9791826 (Version 1)
Quarter: 2014Q1

REPORT INFORMATION
  Report Type: Spontaneous
  Country: IT (occurrence: IT)
  Receive Date: 20140102
  Receipt Date: 20140102
  Transmission Date: 20141002
  Serious: Yes (Hospitalization)
  Sender: FDA-Public Use
  Company Number: IT-UCBSA-107030

PATIENT
  Age: 24 Month
  Sex: Male

DRUGS (6)
  1. KEPPRA [Suspect]
     Indication: EPILEPSY
     Dosage: DAILY DOSE: 950MG (STRENGTH 100MG/ML, 300ML BOTTLE+SYINGE FOR ORAL ADMINISTRATION)
     Route: 048
     Dates: start: 20130124, end: 2013
  2. KEPPRA [Suspect]
     Indication: EPILEPSY
     Dosage: INCREASING DOSE
     Dates: start: 2013, end: 20130605
  3. DEPAKIN [Suspect]
     Indication: EPILEPSY
     Dosage: DAILY DOSE : 300MG
     Route: 048
     Dates: start: 20130124, end: 20130605
  4. AUGMENTIN [Suspect]
     Indication: PYREXIA
     Dosage: DAILY DOSE: 10ML, 400MG+57MG, STRENGTH: 5ML
     Dates: start: 20130601, end: 20130605
  5. NEXIUM [Concomitant]
     Indication: GASTRIC DISORDER
     Dosage: DAILY DOSE: 10MG, 28 SACHETS
     Dates: start: 20130124, end: 20130605
  6. NEXIUM [Concomitant]
     Indication: GASTRIC DISORDER
     Dosage: FOR 1 MONTH TILL SUSPENSION
     Dates: start: 2013

REACTIONS (1)
  - Diarrhoea [Recovered/Resolved]
